FAERS Safety Report 19680689 (Version 1)
Quarter: 2021Q3

REPORT INFORMATION
  Report Type: Spontaneous
  Country: US (occurrence: US)
  Receive Date: 20210810
  Receipt Date: 20210810
  Transmission Date: 20211014
  Serious: Yes (Other)
  Sender: FDA-Public Use
  Company Number: US-PFIZER INC-202100992840

PATIENT
  Sex: Male
  Weight: .73 kg

DRUGS (2)
  1. PORACTANT ALFA [Concomitant]
     Active Substance: PORACTANT ALFA
     Indication: PATENT DUCTUS ARTERIOSUS
     Dosage: UNK
  2. INDOMETHACIN. [Suspect]
     Active Substance: INDOMETHACIN
     Indication: PATENT DUCTUS ARTERIOSUS
     Dosage: UNK

REACTIONS (2)
  - Drug ineffective [Unknown]
  - Neonatal hypotension [Unknown]
